FAERS Safety Report 8417796-4 (Version None)
Quarter: 2012Q2

REPORT INFORMATION
  Report Type: 
  Country: None (occurrence: None)
  Receive Date: 20120607
  Receipt Date: 20120531
  Transmission Date: 20120825
  Serious: Yes (Hospitalization, Other)
  Sender: FDA-Public Use
  Company Number: FR-BRISTOL-MYERS SQUIBB COMPANY-16398323

PATIENT
  Age: 83 Year
  Sex: Female

DRUGS (12)
  1. DICLOFENAC SODIUM [Interacting]
     Indication: BACK PAIN
     Dosage: GASTRO-RESISTANT TABLET
     Route: 048
     Dates: start: 20111118, end: 20111121
  2. PERINDOPRIL ERBUMINE [Interacting]
     Indication: HYPERTENSION
     Dosage: FILM COATED TABLET
     Route: 048
     Dates: end: 20111121
  3. AMIODARONE HCL [Concomitant]
     Indication: ATRIAL FIBRILLATION
     Route: 048
     Dates: end: 20111126
  4. ASPIRIN [Concomitant]
     Dosage: POWDER FOR ORAL SOLUTION IN SACHETS IN 1 INTAKE
     Route: 048
  5. ESIDRIX [Interacting]
     Indication: HYPERTENSION
     Dosage: HALF TABLET DAILY
     Route: 048
     Dates: end: 20111121
  6. LERCANIDIPINE [Concomitant]
     Indication: HYPERTENSION
  7. COLTRAMYL [Concomitant]
     Indication: BACK PAIN
     Dosage: DF=1 INTAKE
     Route: 048
     Dates: start: 20111118, end: 20111121
  8. IRBESARTAN [Suspect]
     Indication: HYPERTENSION
     Route: 048
     Dates: end: 20111121
  9. ACETAMINOPHEN [Concomitant]
     Indication: BACK PAIN
     Dosage: 3 TO 6 TABS DAILY
     Route: 048
     Dates: start: 20111118
  10. OMEPRAZOLE [Concomitant]
     Indication: BACK PAIN
     Dosage: GASTRO-RESISTANT TABLET
     Route: 048
     Dates: start: 20111118, end: 20111121
  11. NEXIUM [Concomitant]
     Dosage: GASTRO-RESISTANT TABLET
     Route: 048
  12. POLYETHYLENE GLYCOL [Concomitant]
     Dosage: 1DF=1INTAKE
     Route: 048

REACTIONS (2)
  - RENAL FAILURE ACUTE [None]
  - DRUG INTERACTION [None]
